FAERS Safety Report 17901346 (Version 2)
Quarter: 2020Q3

REPORT INFORMATION
  Report Type: Spontaneous
  Country: US (occurrence: US)
  Receive Date: 20200616
  Receipt Date: 20200718
  Transmission Date: 20201103
  Serious: No
  Sender: FDA-Public Use
  Company Number: US-GLAXOSMITHKLINE-US2020AMR100963

PATIENT
  Sex: Male
  Weight: 98.14 kg

DRUGS (1)
  1. VENTOLIN HFA [Suspect]
     Active Substance: ALBUTEROL SULFATE
     Indication: ASTHMA
     Dosage: 2 PUFF(S), 6D
     Route: 065
     Dates: start: 20170203

REACTIONS (5)
  - Asthma [Unknown]
  - Respiratory tract congestion [Unknown]
  - Intentional underdose [Unknown]
  - Product dose omission issue [Unknown]
  - Dyspnoea [Unknown]
